FAERS Safety Report 6793104-X (Version None)
Quarter: 2010Q2

REPORT INFORMATION
  Report Type: 
  Country: None (occurrence: None)
  Receive Date: 20100624
  Receipt Date: 20090727
  Transmission Date: 20101027
  Serious: Yes (Other)
  Sender: FDA-Public Use
  Company Number: US-MYLANLABS-2009S1008053

PATIENT
  Age: 31 Year
  Sex: Male

DRUGS (11)
  1. CLOZAPINE [Suspect]
     Indication: SCHIZOPHRENIA
     Route: 048
     Dates: end: 20090609
  2. CLOZAPINE [Suspect]
     Indication: PSYCHOTIC DISORDER
     Route: 048
     Dates: end: 20090609
  3. CLOZAPINE [Suspect]
     Indication: SCHIZOAFFECTIVE DISORDER
     Route: 048
     Dates: end: 20090609
  4. CLOZAPINE [Suspect]
     Route: 048
     Dates: end: 20090609
  5. CLOZAPINE [Suspect]
     Route: 048
     Dates: end: 20090609
  6. CLOZAPINE [Suspect]
     Route: 048
     Dates: end: 20090609
  7. ALPRAZOLAM [Concomitant]
     Route: 048
  8. MULTI-VITAMIN [Concomitant]
     Route: 048
  9. DOCUSATE [Concomitant]
     Route: 048
  10. DEPAKOTE [Concomitant]
     Route: 048
  11. TRAVATAN [Concomitant]
     Route: 047

REACTIONS (2)
  - GRANULOCYTOPENIA [None]
  - LEUKOPENIA [None]
